FAERS Safety Report 21614828 (Version 1)
Quarter: 2022Q4

REPORT INFORMATION
  Report Type: Spontaneous
  Country: DE (occurrence: DE)
  Receive Date: 20221118
  Receipt Date: 20221118
  Transmission Date: 20230113
  Serious: Yes (Hospitalization)
  Sender: FDA-Public Use
  Company Number: DE-ADRED-08309-01

PATIENT
  Age: 60 Year
  Sex: Female
  Weight: 75 kg

DRUGS (13)
  1. TORSEMIDE [Suspect]
     Active Substance: TORSEMIDE
     Indication: Product used for unknown indication
     Dosage: 50 MILLIGRAM(50 MG, BY SCHEME, TABLETS)
     Route: 048
  2. CINACALCET HYDROCHLORIDE [Suspect]
     Active Substance: CINACALCET HYDROCHLORIDE
     Indication: Product used for unknown indication
     Dosage: 90 MILLIGRAM, 90 MG, 0-0-1-0, TABLET
     Route: 048
  3. PIPERACILLIN AND TAZOBACTAM [Suspect]
     Active Substance: PIPERACILLIN SODIUM\TAZOBACTAM SODIUM
     Indication: Product used for unknown indication
     Dosage: 4/0.5 G, REGIMEN, INJECTION SOLN/INFUSION SOLN
     Route: 042
  4. BECLOMETHASONE\FORMOTEROL [Concomitant]
     Active Substance: BECLOMETHASONE\FORMOTEROL
     Dosage: 100|6 UG, 2-0-2-0, METERED DOSE AEROSOL,
  5. EZETIMIBE [Concomitant]
     Active Substance: EZETIMIBE
     Dosage: 10 MILLIGRAM (10 MG, 1-0-0-0, TABLETS)
     Route: 048
  6. ALFACALCIDOL [Concomitant]
     Active Substance: ALFACALCIDOL
     Dosage: 0.25 MICROGRAM (0.25 UG, 0-0-1-0, CAPSULE)
     Route: 048
  7. CHOLECALCIFEROL [Concomitant]
     Active Substance: CHOLECALCIFEROL
     Dosage: 20000 IU, BY SCHEME, CAPSULE
     Route: 048
  8. GABAPENTIN [Concomitant]
     Active Substance: GABAPENTIN
     Dosage: 100 MILLIGRAM (100 MG, 1-0-0-2, CAPSULE)
     Route: 048
  9. DALTEPARIN [Concomitant]
     Active Substance: DALTEPARIN
     Dosage: 2500 INTERNATIONAL UNIT,0-0-1-0,PRE-FILLED SYRINGES
     Route: 058
  10. ALBUTEROL [Concomitant]
     Active Substance: ALBUTEROL
     Dosage: 0.1 MG, NEED, METERED DOSE AEROSOL
  11. Eisen [Concomitant]
     Dosage: 500 MG, 1-1-1-0, TABLETS
     Route: 048
  12. PANTOPRAZOLE SODIUM [Concomitant]
     Active Substance: PANTOPRAZOLE SODIUM
     Dosage: 40 MG, 1-0-0-0, RETARD-TABLETS
     Route: 048
  13. ROSUVASTATIN [Concomitant]
     Active Substance: ROSUVASTATIN
     Dosage: 10 MILLIGRAM(10 MG, 0-0-1-0, TABLETS)
     Route: 048

REACTIONS (4)
  - Pain [Unknown]
  - Ileus [Unknown]
  - Diarrhoea [Unknown]
  - Nausea [Unknown]
